FAERS Safety Report 5215126-2 (Version None)
Quarter: 2007Q1

REPORT INFORMATION
  Report Type: 
  Country: None (occurrence: None)
  Receive Date: 20061107
  Receipt Date: 20060711
  Transmission Date: 20070707
  Serious: No
  Sender: FDA-Public Use
  Company Number: 200614505BWH

PATIENT
  Sex: Male

DRUGS (2)
  1. LEVITRA [Suspect]
     Dosage: PRN, ORAL
     Route: 048
     Dates: start: 20050101, end: 20050101
  2. LEVITRA [Suspect]
     Dosage: PRN, ORAL
     Route: 048
     Dates: start: 20050101

REACTIONS (2)
  - FLUSHING [None]
  - HEART RATE INCREASED [None]
